FAERS Safety Report 6914772-5 (Version None)
Quarter: 2010Q3

REPORT INFORMATION
  Report Type: 
  Country: None (occurrence: None)
  Receive Date: 20100809
  Receipt Date: 20100730
  Transmission Date: 20110219
  Serious: Yes (Other)
  Sender: FDA-Public Use
  Company Number: US-GENZYME-CLOF-1000998

PATIENT
  Sex: Male
  Weight: 24.5 kg

DRUGS (30)
  1. CLOLAR [Suspect]
     Indication: ACUTE LYMPHOCYTIC LEUKAEMIA
     Dosage: 52 MG/M2, QDX5
     Route: 042
     Dates: start: 20100428, end: 20100502
  2. CYTARABINE [Suspect]
     Indication: ACUTE LYMPHOCYTIC LEUKAEMIA
     Dosage: 1000 MG/M2, QD
     Route: 042
     Dates: start: 20100427, end: 20100502
  3. TACROLIMUS [Concomitant]
     Indication: PROPHYLAXIS AGAINST GRAFT VERSUS HOST DISEASE
     Dosage: 0.027 MG/KG, UNK
     Route: 041
     Dates: start: 20100506, end: 20100529
  4. MYCOPHENOLATE MOFETIL [Concomitant]
     Indication: PROPHYLAXIS AGAINST GRAFT VERSUS HOST DISEASE
     Dosage: 810 MG, QID
     Route: 042
     Dates: start: 20100508
  5. CIDOFOVIR [Concomitant]
     Indication: ADENOVIRUS INFECTION
     Dosage: 25 MG, UNK
     Route: 041
     Dates: start: 20100430, end: 20100527
  6. HYDROCORTISONE [Concomitant]
     Indication: GRAFT VERSUS HOST DISEASE
     Dosage: 1 %, Q12HR
     Route: 061
     Dates: start: 20100523, end: 20100618
  7. IMMUNE GLOBULIN NOS [Concomitant]
     Indication: INFECTION PROPHYLAXIS
     Dosage: 4900 MG, Q3W
     Route: 042
     Dates: start: 20100506
  8. TRIAMCINOLONE [Concomitant]
     Indication: GRAFT VERSUS HOST DISEASE
     Dosage: 0.1 %, Q12HR
     Route: 061
     Dates: start: 20100520, end: 20100618
  9. ZINC OXIDE [Concomitant]
     Indication: RECTAL FISSURE
     Dosage: 20 %, Q4HR
     Route: 061
     Dates: start: 20100508, end: 20100601
  10. RED BLOOD CELLS [Concomitant]
     Indication: ANAEMIA
     Dosage: 1 U, ONCE
     Route: 042
     Dates: start: 20100528, end: 20100528
  11. PLATELETS [Concomitant]
     Indication: THROMBOCYTOPENIA
     Dosage: 1 U, QD
     Route: 042
     Dates: start: 20100528, end: 20100529
  12. DAPSONE [Concomitant]
     Indication: ANTIFUNGAL PROPHYLAXIS
     Dosage: 50 MG, QD
     Route: 048
     Dates: start: 20100416
  13. LINEZOLID [Concomitant]
     Indication: INFECTION
     Dosage: 270 MG, TID
     Route: 042
     Dates: start: 20100513, end: 20100607
  14. MEROPENEM [Concomitant]
     Indication: INFECTION
     Dosage: 500 MG, TID
     Route: 042
     Dates: start: 20100512, end: 20100606
  15. METRONIDAZOLE [Concomitant]
     Indication: INFECTION
     Dosage: 200 MG, QID
     Route: 042
     Dates: start: 20100511, end: 20100608
  16. MICAFUNGIN [Concomitant]
     Indication: ANTIFUNGAL PROPHYLAXIS
     Dosage: 125 MG, QD
     Route: 042
     Dates: start: 20100407
  17. NYSTATIN [Concomitant]
     Indication: CANDIDIASIS
     Dosage: 5 ML, QID
     Route: 048
     Dates: start: 20100426, end: 20100618
  18. CHLOROTHIAZIDE [Concomitant]
     Indication: FLUID OVERLOAD
     Dosage: 50 MG, BID
     Route: 042
     Dates: start: 20100510, end: 20100615
  19. FUROSEMIDE [Concomitant]
     Indication: FLUID OVERLOAD
     Dosage: 20 MG, QID
     Route: 042
     Dates: start: 20100430, end: 20100617
  20. FUROSEMIDE [Concomitant]
     Dosage: 10 MG, ONCE
     Route: 042
     Dates: start: 20100529, end: 20100529
  21. PROPRANOLOL [Concomitant]
     Indication: ELECTROCARDIOGRAM QT PROLONGED
     Dosage: 1 MG, QID
     Route: 042
     Dates: start: 20100518, end: 20100602
  22. SPIRONOLACTONE [Concomitant]
     Indication: FLUID OVERLOAD
     Dosage: 37.5 MG, BID
     Route: 048
     Dates: start: 20100511, end: 20100529
  23. NIFEDIPINE [Concomitant]
     Indication: HYPERTENSION
     Dosage: 2.5 MG, ONCE
     Route: 048
     Dates: start: 20100528, end: 20100528
  24. NIFEDIPINE [Concomitant]
     Dosage: 2.5 MG, QID
     Route: 048
     Dates: start: 20100529
  25. HYDROXYZINE [Concomitant]
     Indication: ANTIEMETIC SUPPORTIVE CARE
     Dosage: 25 MG, QID
     Route: 042
     Dates: start: 20100415, end: 20100619
  26. LORAZEPAM [Concomitant]
     Indication: ANTIEMETIC SUPPORTIVE CARE
     Dosage: 1 MG, QID
     Route: 042
     Dates: start: 20100427, end: 20100614
  27. PROCHLORPERAZINE [Concomitant]
     Indication: ANTIEMETIC SUPPORTIVE CARE
     Dosage: 2.5 MG, TID
     Route: 042
     Dates: start: 20100505, end: 20100602
  28. ENOXAPARIN SODIUM [Concomitant]
     Indication: PROPHYLAXIS
     Dosage: 28 MG, QD
     Route: 058
     Dates: start: 20100427, end: 20100528
  29. URSODIOL [Concomitant]
     Indication: PROPHYLAXIS
     Dosage: 300 MG, Q12HR
     Route: 048
     Dates: start: 20100427
  30. PROBENECID [Concomitant]
     Indication: PROPHYLAXIS
     Dosage: 500 MG, UNK
     Route: 048
     Dates: start: 20100430, end: 20100528

REACTIONS (1)
  - DEPRESSED LEVEL OF CONSCIOUSNESS [None]
